FAERS Safety Report 4520146-7 (Version None)
Quarter: 2004Q4

REPORT INFORMATION
  Report Type: 
  Country: None (occurrence: None)
  Receive Date: 20041202
  Receipt Date: 20041202
  Transmission Date: 20050328
  Serious: Yes (Hospitalization)
  Sender: FDA-Public Use
  Company Number: None

PATIENT
  Age: 63 Year
  Sex: Female
  Weight: 67 kg

DRUGS (3)
  1. PACLITAXEL [Suspect]
     Indication: OVARIAN CANCER
     Dosage: 300 MG, IV Q 3 WK
     Route: 042
     Dates: start: 20040730
  2. CARBOPLATIN [Suspect]
     Indication: OVARIAN CANCER
     Dosage: 515 MG, IV, Q3 WK
     Route: 042
     Dates: start: 20040630
  3. LOSEC [Concomitant]

REACTIONS (1)
  - FEBRILE NEUTROPENIA [None]
